FAERS Safety Report 4807719-9 (Version None)
Quarter: 2005Q4

REPORT INFORMATION
  Report Type: 
  Country: None (occurrence: None)
  Receive Date: 20051019
  Receipt Date: 20051003
  Transmission Date: 20060501
  Serious: Yes (Hospitalization)
  Sender: FDA-Public Use
  Company Number: 2004EU001886

PATIENT
  Age: 13 Year
  Sex: Male
  Weight: 42.3 kg

DRUGS (6)
  1. PROGRAF [Suspect]
     Indication: RENAL TRANSPLANT
     Dosage: SEE IMAGE
     Dates: start: 20031224, end: 20040927
  2. PROGRAF [Suspect]
     Indication: RENAL TRANSPLANT
     Dosage: SEE IMAGE
     Dates: start: 20040929
  3. JOSACINE (JOSAMYCIN) [Suspect]
     Indication: PHARYNGOLARYNGEAL PAIN
     Dosage: ORAL
     Route: 048
     Dates: start: 20040924, end: 20040926
  4. IMUREL [Concomitant]
  5. PREDNISONE [Concomitant]
  6. ENALAPRIL MALEATE [Concomitant]

REACTIONS (12)
  - BLOOD CREATININE INCREASED [None]
  - DRUG INTERACTION [None]
  - DRUG LEVEL INCREASED [None]
  - HEADACHE [None]
  - LUNG INFECTION [None]
  - NASOPHARYNGITIS [None]
  - NEPHROPATHY TOXIC [None]
  - PANCREATITIS [None]
  - PHARYNGOLARYNGEAL PAIN [None]
  - PYREXIA [None]
  - RASH MACULAR [None]
  - TRANSPLANT REJECTION [None]
